FAERS Safety Report 8048271-7 (Version None)
Quarter: 2012Q1

REPORT INFORMATION
  Report Type: 
  Country: None (occurrence: None)
  Receive Date: 20120110
  Receipt Date: 20120103
  Transmission Date: 20120608
  Serious: Yes (Disabling)
  Sender: FDA-Public Use
  Company Number: DSA_48707_2012

PATIENT
  Sex: Male
  Weight: 82 kg

DRUGS (4)
  1. XENAZINE [Suspect]
     Indication: TIC
     Dosage: (12.5 MG BID ORAL), (12.5 MG TID ORAL), (12.5 MG QID ORAL), (12.5 MG BID ORAL)
     Route: 048
     Dates: start: 20111201
  2. XENAZINE [Suspect]
     Indication: TIC
     Dosage: (12.5 MG BID ORAL), (12.5 MG TID ORAL), (12.5 MG QID ORAL), (12.5 MG BID ORAL)
     Route: 048
     Dates: start: 20111101, end: 20111101
  3. XENAZINE [Suspect]
     Indication: TIC
     Dosage: (12.5 MG BID ORAL), (12.5 MG TID ORAL), (12.5 MG QID ORAL), (12.5 MG BID ORAL)
     Route: 048
     Dates: start: 20111101, end: 20111101
  4. XENAZINE [Suspect]
     Indication: TIC
     Dosage: (12.5 MG BID ORAL), (12.5 MG TID ORAL), (12.5 MG QID ORAL), (12.5 MG BID ORAL)
     Route: 048
     Dates: start: 20111101, end: 20111101

REACTIONS (5)
  - THERAPEUTIC RESPONSE UNEXPECTED [None]
  - SOMNOLENCE [None]
  - IMPAIRED WORK ABILITY [None]
  - LACK OF SPONTANEOUS SPEECH [None]
  - SOCIAL AVOIDANT BEHAVIOUR [None]
